FAERS Safety Report 19471503 (Version 4)
Quarter: 2021Q3

REPORT INFORMATION
  Report Type: Report from Study
  Country: US (occurrence: US)
  Receive Date: 20210628
  Receipt Date: 20210810
  Transmission Date: 20211014
  Serious: Yes (Hospitalization)
  Sender: FDA-Public Use
  Company Number: US-SEATTLE GENETICS-2021SGN03334

PATIENT
  Sex: Female

DRUGS (2)
  1. TUCATINIB [Suspect]
     Active Substance: TUCATINIB
     Indication: BREAST CANCER FEMALE
  2. TUCATINIB [Suspect]
     Active Substance: TUCATINIB
     Dosage: UNK

REACTIONS (12)
  - Hospice care [Unknown]
  - Retching [Unknown]
  - Somnolence [Unknown]
  - Asthenia [Unknown]
  - Nausea [Unknown]
  - Tumour marker increased [Unknown]
  - Product dose omission issue [Unknown]
  - Cough [Unknown]
  - Device occlusion [Unknown]
  - Pulmonary congestion [Unknown]
  - Dysphagia [Unknown]
  - Diarrhoea [Unknown]
